FAERS Safety Report 14197691 (Version 3)
Quarter: 2018Q1

REPORT INFORMATION
  Report Type: Spontaneous
  Country: US (occurrence: US)
  Receive Date: 20171116
  Receipt Date: 20180123
  Transmission Date: 20180508
  Serious: Yes (Life-Threatening, Hospitalization, Other)
  Sender: FDA-Public Use
  Company Number: US-BAUSCH-BL-2017-023318

PATIENT
  Age: 82 Year
  Sex: Female

DRUGS (7)
  1. NIFEDIPINE. [Suspect]
     Active Substance: NIFEDIPINE
     Indication: HYPERTENSION
     Dosage: OCEAN SIDE
     Route: 065
     Dates: start: 2017
  2. LASIX [Suspect]
     Active Substance: FUROSEMIDE
     Indication: PAIN
     Route: 065
  3. LASIX [Suspect]
     Active Substance: FUROSEMIDE
     Indication: PERIPHERAL SWELLING
     Dosage: DOSE INCREASED
     Route: 065
  4. NORVASC [Suspect]
     Active Substance: AMLODIPINE BESYLATE
     Indication: PRODUCT USED FOR UNKNOWN INDICATION
     Route: 065
  5. NIFEDICAL XL [Suspect]
     Active Substance: NIFEDIPINE
     Indication: HYPERTENSION
     Dosage: EXTENDED-RELEASE TABLETS
     Route: 065
     Dates: start: 1988
  6. NIFEDICAL XL [Suspect]
     Active Substance: NIFEDIPINE
     Dosage: DOSE REDUCED
     Route: 065
     Dates: end: 201706
  7. PROTONIX [Suspect]
     Active Substance: PANTOPRAZOLE SODIUM
     Indication: PRODUCT USED FOR UNKNOWN INDICATION
     Route: 065
     Dates: end: 2017

REACTIONS (10)
  - Anxiety [Unknown]
  - Muscle spasms [Recovered/Resolved]
  - Haemorrhage [Unknown]
  - Peripheral swelling [Unknown]
  - Fluid retention [Unknown]
  - Dyspnoea [Recovered/Resolved]
  - Nervousness [Unknown]
  - Pain [Recovering/Resolving]
  - Resuscitation [Recovered/Resolved]
  - Hypersensitivity [Recovered/Resolved]

NARRATIVE: CASE EVENT DATE: 2012
